FAERS Safety Report 17892320 (Version 1)
Quarter: 2020Q2

REPORT INFORMATION
  Report Type: Spontaneous
  Country: US (occurrence: US)
  Receive Date: 20200612
  Receipt Date: 20200612
  Transmission Date: 20200714
  Serious: No
  Sender: FDA-Public Use
  Company Number: US-BIOHAVEN PHARMACEUTICALS-2020BHV00068

PATIENT
  Sex: Female

DRUGS (1)
  1. NURTEC ODT [Suspect]
     Active Substance: RIMEGEPANT SULFATE
     Dosage: UNK

REACTIONS (6)
  - Pain [Unknown]
  - Asthenia [Unknown]
  - Nausea [Unknown]
  - Unevaluable event [Unknown]
  - Paraesthesia [Unknown]
  - Head discomfort [Unknown]
